FAERS Safety Report 7338534-2 (Version None)
Quarter: 2011Q1

REPORT INFORMATION
  Report Type: 
  Country: None (occurrence: None)
  Receive Date: 20110308
  Receipt Date: 20110228
  Transmission Date: 20110831
  Serious: Yes (Other)
  Sender: FDA-Public Use
  Company Number: US-SANOFI-AVENTIS-2011SA013186

PATIENT
  Age: 57 Year
  Sex: Female

DRUGS (4)
  1. LANTUS [Suspect]
     Dosage: DOSE:62 UNIT(S)
     Route: 058
     Dates: start: 20090101
  2. LANTUS [Suspect]
     Indication: TYPE 2 DIABETES MELLITUS
     Route: 058
     Dates: end: 20090101
  3. NOVOLOG [Concomitant]
     Dosage: 15-16 UNITS TID WITH MEALS
  4. SOLOSTAR [Suspect]
     Dates: start: 20090101

REACTIONS (4)
  - BLOOD GLUCOSE INCREASED [None]
  - MACULAR HOLE [None]
  - VISUAL FIELD DEFECT [None]
  - ASTHMA [None]
